FAERS Safety Report 10710727 (Version 1)
Quarter: 2015Q1

REPORT INFORMATION
  Report Type: Spontaneous
  Country: US (occurrence: US)
  Receive Date: 20150114
  Receipt Date: 20150114
  Transmission Date: 20150721
  Serious: Yes (Death)
  Sender: FDA-Public Use
  Company Number: US-PFIZER INC-2015006823

PATIENT
  Age: 58 Year
  Sex: Male

DRUGS (8)
  1. GUAIFENESIN/PSEUDOEPHEDRINE ER [Suspect]
     Active Substance: GUAIFENESIN\PSEUDOEPHEDRINE HYDROCHLORIDE
     Dosage: UNK
     Route: 048
  2. MORPHINE SULFATE. [Suspect]
     Active Substance: MORPHINE SULFATE
     Route: 048
  3. HYDROMORPHONE [Suspect]
     Active Substance: HYDROMORPHONE
     Route: 048
  4. THEOPHYLLINE [Suspect]
     Active Substance: THEOPHYLLINE ANHYDROUS
     Dosage: UNK
     Route: 048
  5. CITALOPRAM [Suspect]
     Active Substance: CITALOPRAM HYDROBROMIDE
     Dosage: UNK
     Route: 048
  6. TRAMADOL [Suspect]
     Active Substance: TRAMADOL
     Dosage: UNK
     Route: 048
  7. AMLODIPINE BESILATE [Suspect]
     Active Substance: AMLODIPINE BESYLATE
     Route: 048
  8. FLUPHENAZINE [Suspect]
     Active Substance: FLUPHENAZINE
     Dosage: UNK
     Route: 048

REACTIONS (4)
  - Cardiac arrest [Fatal]
  - Completed suicide [Fatal]
  - Exposure via ingestion [None]
  - Respiratory arrest [Fatal]

NARRATIVE: CASE EVENT DATE: 2013
